FAERS Safety Report 5696744-4 (Version None)
Quarter: 2008Q2

REPORT INFORMATION
  Report Type: 
  Country: None (occurrence: None)
  Receive Date: 20080408
  Receipt Date: 20060921
  Transmission Date: 20081010
  Serious: Yes (Other)
  Sender: FDA-Public Use
  Company Number: US-BAYER-US-2006-028316

PATIENT
  Age: 32 Year
  Sex: Female

DRUGS (1)
  1. YASMIN [Suspect]
     Indication: MENORRHAGIA
     Route: 048
     Dates: start: 20041001

REACTIONS (5)
  - ANOREXIA [None]
  - FEELING ABNORMAL [None]
  - IRRITABILITY [None]
  - PANIC ATTACK [None]
  - SUICIDAL IDEATION [None]
